FAERS Safety Report 20406216 (Version 1)
Quarter: 2022Q1

REPORT INFORMATION
  Report Type: Spontaneous
  Country: US (occurrence: US)
  Receive Date: 20220131
  Receipt Date: 20220131
  Transmission Date: 20220423
  Serious: No
  Sender: FDA-Public Use
  Company Number: US-NOVARTISTESTPH-NVSC2022US020856

PATIENT
  Age: 81 Year
  Sex: Male

DRUGS (1)
  1. VOLTAREN [Suspect]
     Active Substance: DICLOFENAC SODIUM
     Indication: Arthritis
     Dosage: UNK
     Route: 065
     Dates: start: 20220104, end: 20220112

REACTIONS (4)
  - Dermatitis acneiform [Recovering/Resolving]
  - Acne [Recovering/Resolving]
  - Erythema [Recovered/Resolved]
  - Nodule [Recovering/Resolving]

NARRATIVE: CASE EVENT DATE: 20220110
